FAERS Safety Report 13196659 (Version 3)
Quarter: 2017Q2

REPORT INFORMATION
  Report Type: Spontaneous
  Country: JP (occurrence: JP)
  Receive Date: 20170208
  Receipt Date: 20170410
  Transmission Date: 20170830
  Serious: Yes (Other)
  Sender: FDA-Public Use
  Company Number: JP-PFIZER INC-2017052234

PATIENT
  Age: 83 Year
  Sex: Female

DRUGS (9)
  1. LYRICA [Suspect]
     Active Substance: PREGABALIN
     Indication: BACK PAIN
     Dosage: 75 MG, 2X/DAY
     Route: 048
     Dates: start: 20161005
  2. TRAMCET [Suspect]
     Active Substance: ACETAMINOPHEN\TRAMADOL
     Indication: ARTHRALGIA
     Dosage: 2 DF, DAILY
     Route: 048
     Dates: start: 20160526, end: 20161213
  3. BONALON [Concomitant]
     Active Substance: ALENDRONATE SODIUM
     Indication: OSTEOPOROSIS
     Dosage: 35 MG, 1X/DAY
  4. REBAMIPIDE [Concomitant]
     Active Substance: REBAMIPIDE
     Dosage: 100 MG, 2X/DAY
  5. TRAMCET [Suspect]
     Active Substance: ACETAMINOPHEN\TRAMADOL
     Dosage: 1 DF, 3X/DAY
     Route: 048
     Dates: start: 20161214
  6. ATINES [Concomitant]
     Active Substance: EPERISONE HYDROCHLORIDE
     Dosage: 50 MG, 2X/DAY
  7. VOLTAREN [Concomitant]
     Active Substance: DICLOFENAC SODIUM
  8. ECARD COMBINATION [Concomitant]
     Indication: HYPERTENSION
     Dosage: 1 DF, 1X/DAY
  9. MAGMITT [Concomitant]
     Active Substance: MAGNESIUM OXIDE
     Indication: CONSTIPATION
     Dosage: 330 MG, 3X/DAY
     Dates: start: 20160907

REACTIONS (5)
  - Fall [Recovered/Resolved]
  - Cataract [Unknown]
  - Dizziness [Recovering/Resolving]
  - Loss of consciousness [Recovered/Resolved]
  - Haemorrhage intracranial [Recovering/Resolving]

NARRATIVE: CASE EVENT DATE: 20161012
